FAERS Safety Report 8617597-8 (Version None)
Quarter: 2012Q3

REPORT INFORMATION
  Report Type: 
  Country: None (occurrence: None)
  Receive Date: 20120824
  Receipt Date: 20111128
  Transmission Date: 20120928
  Serious: No
  Sender: FDA-Public Use
  Company Number: US-ASTRAZENECA-2011SE71979

PATIENT
  Age: 65 Year
  Sex: Male
  Weight: 64.4 kg

DRUGS (3)
  1. SYMBICORT [Suspect]
     Indication: CHRONIC OBSTRUCTIVE PULMONARY DISEASE
     Dosage: 160/4.5 TWO PUFFS TWICE DAILY
     Route: 055
  2. VITAMIN TAB [Concomitant]
  3. ALEVE [Concomitant]
     Indication: ARTHRITIS

REACTIONS (3)
  - DYSPHAGIA [None]
  - PAIN IN EXTREMITY [None]
  - MUSCULAR WEAKNESS [None]
